FAERS Safety Report 4941827-7 (Version None)
Quarter: 2006Q1

REPORT INFORMATION
  Report Type: 
  Country: None (occurrence: None)
  Receive Date: 20060313
  Receipt Date: 20060306
  Transmission Date: 20060701
  Serious: Yes (Hospitalization)
  Sender: FDA-Public Use
  Company Number: US-AVENTIS-200612132US

PATIENT
  Sex: Male

DRUGS (6)
  1. LANTUS [Suspect]
     Indication: DIABETES MELLITUS NON-INSULIN-DEPENDENT
     Dosage: DOSE UNIT: UNITS
     Route: 058
     Dates: start: 20010101, end: 20060301
  2. LANTUS [Suspect]
     Dosage: DOSE UNIT: UNITS
     Route: 058
     Dates: start: 20010101, end: 20060301
  3. LANTUS [Suspect]
     Dosage: DOSE UNIT: UNITS
     Route: 058
     Dates: start: 20010101, end: 20060301
  4. PRINIVIL [Concomitant]
     Dosage: DOSE: UNK
  5. TOPROL-XL [Concomitant]
     Dosage: DOSE: UNK
  6. HUMALOG [Concomitant]
     Dosage: DOSE: 5 UNITS BEFORE MEALS IF BLOOD SUGAR 100 OR GREATER

REACTIONS (2)
  - BLOOD GLUCOSE DECREASED [None]
  - CORONARY ARTERY SURGERY [None]
